FAERS Safety Report 6194455-2 (Version None)
Quarter: 2009Q2

REPORT INFORMATION
  Report Type: 
  Country: None (occurrence: None)
  Receive Date: 20090519
  Receipt Date: 20090511
  Transmission Date: 20091009
  Serious: Yes (Other)
  Sender: FDA-Public Use
  Company Number: PHHY2009CR17842

PATIENT

DRUGS (1)
  1. CATAFLAM [Suspect]
     Dosage: 50 MG, UNK
     Route: 048

REACTIONS (2)
  - ACCIDENT [None]
  - FOOT FRACTURE [None]
